FAERS Safety Report 6150977-1 (Version None)
Quarter: 2009Q2

REPORT INFORMATION
  Report Type: 
  Country: None (occurrence: None)
  Receive Date: 20090410
  Receipt Date: 20090401
  Transmission Date: 20091009
  Serious: Yes (Other)
  Sender: FDA-Public Use
  Company Number: US-JNJFOC-20090401228

PATIENT
  Sex: Female
  Weight: 83.92 kg

DRUGS (5)
  1. REMICADE [Suspect]
     Indication: COLITIS ULCERATIVE
     Route: 042
  2. THYROID MEDICATION [Concomitant]
  3. SIMVASTATIN [Concomitant]
  4. ASACOL [Concomitant]
  5. MERCAPTOPURINE [Concomitant]
     Dosage: HALF TABLET DAILY

REACTIONS (3)
  - ARTHRITIS [None]
  - PSORIASIS [None]
  - WEIGHT INCREASED [None]
